FAERS Safety Report 24639678 (Version 1)
Quarter: 2024Q4

REPORT INFORMATION
  Report Type: Spontaneous
  Country: CZ (occurrence: CZ)
  Receive Date: 20241119
  Receipt Date: 20241119
  Transmission Date: 20250115
  Serious: Yes (Other)
  Sender: AMGEN
  Company Number: CZ-AMGEN-CZESP2024224693

PATIENT
  Sex: Male

DRUGS (1)
  1. CINACALCET HYDROCHLORIDE [Suspect]
     Active Substance: CINACALCET HYDROCHLORIDE
     Indication: Hyperparathyroidism
     Dosage: 30 MILLIGRAM
     Route: 065

REACTIONS (4)
  - Haemorrhage intracranial [Unknown]
  - Cerebral venous sinus thrombosis [Unknown]
  - Therapeutic product effect incomplete [Unknown]
  - Hypercalcaemia [Unknown]
